FAERS Safety Report 13055142 (Version 2)
Quarter: 2017Q1

REPORT INFORMATION
  Report Type: Spontaneous
  Country: US (occurrence: US)
  Receive Date: 20161222
  Receipt Date: 20170112
  Transmission Date: 20170428
  Serious: No
  Sender: FDA-Public Use
  Company Number: US-PFIZER INC-2016587084

PATIENT
  Age: 68 Year
  Sex: Female
  Weight: 72.57 kg

DRUGS (1)
  1. LYRICA [Suspect]
     Active Substance: PREGABALIN
     Indication: POST HERPETIC NEURALGIA
     Dosage: 25 MG, 1X/DAY
     Dates: start: 20161031, end: 20161202

REACTIONS (8)
  - Drug ineffective [Unknown]
  - Heart rate increased [Recovered/Resolved]
  - Dyspnoea [Recovering/Resolving]
  - Nausea [Unknown]
  - Dissociation [Unknown]
  - Intentional product use issue [Unknown]
  - Anxiety [Unknown]
  - Discomfort [Unknown]

NARRATIVE: CASE EVENT DATE: 20161202
